FAERS Safety Report 7417491-4 (Version None)
Quarter: 2011Q2

REPORT INFORMATION
  Report Type: 
  Country: None (occurrence: None)
  Receive Date: 20110415
  Receipt Date: 20110415
  Transmission Date: 20111010
  Serious: Yes (Other)
  Sender: FDA-Public Use
  Company Number: None

PATIENT
  Age: 13 Year
  Sex: Female
  Weight: 56.6996 kg

DRUGS (2)
  1. ULTILET STERILE ALCOHOL SWABS 70% ISOPROPYL ALCOHOL BOCA MEDICAL PRODU [Suspect]
     Indication: INFECTION PROPHYLAXIS
     Dosage: 1 PACKET UP TO 8 PER DAY TOP
     Route: 061
     Dates: start: 20101015, end: 20110413
  2. UNI-SOLVE ADHESIVE REMOVER SMITH + NEPHEW [Suspect]
     Indication: MEDICAL DEVICE REMOVAL
     Dosage: 1 PACKET EVERY 3 DAYS TOP
     Route: 061
     Dates: start: 20110225, end: 20110413

REACTIONS (1)
  - GASTROENTERITIS VIRAL [None]
